FAERS Safety Report 22273327 (Version 2)
Quarter: 2023Q2

REPORT INFORMATION
  Report Type: Spontaneous
  Country: IN (occurrence: IN)
  Receive Date: 20230502
  Receipt Date: 20230613
  Transmission Date: 20230721
  Serious: Yes (Other)
  Sender: FDA-Public Use
  Company Number: IN-MLMSERVICE-20230417-4230231-1

PATIENT
  Age: 46 Year
  Sex: Female

DRUGS (1)
  1. LEVOTHYROXINE [Suspect]
     Active Substance: LEVOTHYROXINE
     Indication: Primary hypothyroidism

REACTIONS (3)
  - Splinter haemorrhages [Recovered/Resolved]
  - VIth nerve paralysis [Recovered/Resolved]
  - Idiopathic intracranial hypertension [Recovered/Resolved]
